FAERS Safety Report 5624718-8 (Version None)
Quarter: 2008Q1

REPORT INFORMATION
  Report Type: 
  Country: None (occurrence: None)
  Receive Date: 20080213
  Receipt Date: 20080205
  Transmission Date: 20080703
  Serious: Yes (Hospitalization)
  Sender: FDA-Public Use
  Company Number: B0507713A

PATIENT
  Age: 74 Year
  Sex: Female

DRUGS (6)
  1. LAMICTAL [Suspect]
     Indication: EPILEPSY
     Dosage: 75MG UNKNOWN
     Route: 065
     Dates: start: 20071214, end: 20080108
  2. NORVASC [Concomitant]
     Indication: HYPERTENSION
     Dosage: 5MG PER DAY
  3. COZAAR [Concomitant]
     Indication: HYPERTENSION
  4. ZOCOR [Concomitant]
  5. CARVEDILOL [Concomitant]
  6. LEVOTHYROXINE SODIUM [Concomitant]
     Indication: HYPOTHYROIDISM
     Dosage: 100MG PER DAY

REACTIONS (3)
  - MUCOSA VESICLE [None]
  - RASH MACULO-PAPULAR [None]
  - SWOLLEN TONGUE [None]
